FAERS Safety Report 9684996 (Version 1)
Quarter: 2013Q4

REPORT INFORMATION
  Report Type: Spontaneous
  Country: US (occurrence: US)
  Receive Date: 20131113
  Receipt Date: 20131113
  Transmission Date: 20140711
  Serious: No
  Sender: FDA-Public Use
  Company Number: US-009507513-1311USA003519

PATIENT
  Age: 49 Year
  Sex: Male

DRUGS (9)
  1. VICTRELIS [Suspect]
     Indication: HEPATITIS C
     Dosage: 4 DF, TID; 4 CAPSULES THREE TIMES A DAY
     Route: 048
     Dates: start: 201308
  2. RIBAPAK [Suspect]
  3. PEGASYS [Suspect]
  4. LEVOTHYROXINE SODIUM [Concomitant]
  5. VITAMINS (UNSPECIFIED) [Concomitant]
  6. VITAMIN B COMPLEX [Concomitant]
  7. SERTRALINE HYDROCHLORIDE [Concomitant]
  8. SAW PALMETTO [Concomitant]
  9. MILK THISTLE [Concomitant]

REACTIONS (6)
  - Headache [Unknown]
  - Abdominal pain upper [Unknown]
  - Stress [Unknown]
  - Anger [Unknown]
  - Fatigue [Unknown]
  - Depressed mood [Unknown]
